FAERS Safety Report 16193219 (Version 3)
Quarter: 2019Q3

REPORT INFORMATION
  Report Type: Spontaneous
  Country: US (occurrence: US)
  Receive Date: 20190413
  Receipt Date: 20190807
  Transmission Date: 20191004
  Serious: Yes (Hospitalization, Disabling, Other)
  Sender: FDA-Public Use
  Company Number: US-IPSEN BIOPHARMACEUTICALS, INC.-2019-05454

PATIENT
  Age: 51 Year
  Sex: Female

DRUGS (10)
  1. DYSPORT [Suspect]
     Active Substance: ABOBOTULINUMTOXINA
     Indication: SYMPATHETIC POSTERIOR CERVICAL SYNDROME
  2. DYSPORT [Suspect]
     Active Substance: ABOBOTULINUMTOXINA
     Indication: MIGRAINE
  3. DYSPORT [Suspect]
     Active Substance: ABOBOTULINUMTOXINA
     Indication: OFF LABEL USE
  4. DYSPORT [Suspect]
     Active Substance: ABOBOTULINUMTOXINA
     Indication: PAIN
  5. XEOMIN [Concomitant]
     Active Substance: INCOBOTULINUMTOXINA
     Indication: TORTICOLLIS
     Dates: start: 20170811, end: 20181031
  6. XEOMIN [Concomitant]
     Active Substance: INCOBOTULINUMTOXINA
     Indication: NEURALGIA
  7. XEOMIN [Concomitant]
     Active Substance: INCOBOTULINUMTOXINA
     Indication: MIGRAINE
  8. DYSPORT [Suspect]
     Active Substance: ABOBOTULINUMTOXINA
     Indication: TORTICOLLIS
     Dosage: 1500 UNITS
     Route: 030
     Dates: start: 20181212, end: 20181212
  9. DYSPORT [Suspect]
     Active Substance: ABOBOTULINUMTOXINA
     Indication: NEURALGIA
  10. XEOMIN [Concomitant]
     Active Substance: INCOBOTULINUMTOXINA
     Indication: SYMPATHETIC POSTERIOR CERVICAL SYNDROME

REACTIONS (11)
  - Dysphagia [Not Recovered/Not Resolved]
  - Injection site extravasation [Unknown]
  - Muscular weakness [Recovering/Resolving]
  - Paralysis [Unknown]
  - Choking [Unknown]
  - Walking disability [Unknown]
  - Hypoaesthesia oral [Unknown]
  - Pain [Unknown]
  - Muscle atrophy [Unknown]
  - Dyspnoea [Recovered/Resolved]
  - Off label use [Unknown]

NARRATIVE: CASE EVENT DATE: 20181212
